FAERS Safety Report 8044397-2 (Version None)
Quarter: 2012Q1

REPORT INFORMATION
  Report Type: 
  Country: None (occurrence: None)
  Receive Date: 20120113
  Receipt Date: 20120103
  Transmission Date: 20120608
  Serious: Yes (Death)
  Sender: FDA-Public Use
  Company Number: US-SHIONOGI, INC-2012000031

PATIENT
  Age: 23 Year
  Sex: Male

DRUGS (12)
  1. CEPHALEXIN [Suspect]
     Dosage: UNK
  2. BENZTROPINE MESYLATE [Suspect]
     Dosage: UNK
  3. BUPROPION HYDROCHLORIDE [Suspect]
     Dosage: UNK
  4. FEXOFENADINE HYDROCHLORIDE [Suspect]
     Dosage: UNK
  5. WARFARIN SODIUM [Suspect]
     Dosage: UNK
  6. SERUM LIPID REDUCING AGENTS [Suspect]
     Dosage: UNK
  7. IBUPROFEN [Suspect]
     Dosage: UNK
  8. METOPROLOL TARTRATE [Suspect]
     Dosage: UNK
  9. HALOPERIDOL [Suspect]
     Dosage: UNK
  10. MUSCLE RELAXANTS [Suspect]
     Dosage: UNK
  11. VERAPAMIL [Suspect]
     Dosage: UNK
  12. CLINDAMYCIN [Suspect]
     Dosage: UNK

REACTIONS (1)
  - COMPLETED SUICIDE [None]
